FAERS Safety Report 10785483 (Version 1)
Quarter: 2015Q1

REPORT INFORMATION
  Report Type: Spontaneous
  Country: US (occurrence: None)
  Receive Date: 20150210
  Receipt Date: 20150210
  Transmission Date: 20150721
  Serious: Yes (Death, Hospitalization)
  Sender: FDA-Public Use
  Company Number: None

PATIENT
  Age: 5 Year
  Sex: Female
  Weight: 20.4 kg

DRUGS (5)
  1. CYTARABINE. [Suspect]
     Active Substance: CYTARABINE
     Dates: end: 20140624
  2. DEXAMETHASONE. [Suspect]
     Active Substance: DEXAMETHASONE
     Dates: end: 20140708
  3. VINCRISTINE SULFATE. [Suspect]
     Active Substance: VINCRISTINE SULFATE
     Dates: end: 20140701
  4. ONCASPAR [Suspect]
     Active Substance: PEGASPARGASE
     Dates: end: 20140628
  5. METHOTREXATE [Suspect]
     Active Substance: METHOTREXATE
     Dates: end: 20140701

REACTIONS (4)
  - Pancytopenia [None]
  - Decreased appetite [None]
  - Fungal infection [None]
  - Respiratory failure [None]

NARRATIVE: CASE EVENT DATE: 20140707
